FAERS Safety Report 14348416 (Version 1)
Quarter: 2018Q1

REPORT INFORMATION
  Report Type: Spontaneous
  Country: PT (occurrence: PT)
  Receive Date: 20180103
  Receipt Date: 20180103
  Transmission Date: 20180509
  Serious: Yes (Hospitalization)
  Sender: FDA-Public Use
  Company Number: PT-BAUSCH-BL-2017-035940

PATIENT
  Age: 54 Year
  Sex: Female

DRUGS (15)
  1. QUETIAPINE. [Suspect]
     Active Substance: QUETIAPINE
     Route: 065
  2. TRAZODONE [Suspect]
     Active Substance: TRAZODONE HYDROCHLORIDE
     Indication: ANXIETY
     Route: 065
  3. ALPRAZOLAM. [Suspect]
     Active Substance: ALPRAZOLAM
     Indication: BIPOLAR I DISORDER
     Route: 065
  4. QUETIAPINE. [Suspect]
     Active Substance: QUETIAPINE
     Indication: ANXIETY
     Route: 065
  5. SODIUM VALPROATE [Suspect]
     Active Substance: VALPROATE SODIUM
     Route: 065
  6. LORAZEPAM. [Suspect]
     Active Substance: LORAZEPAM
     Indication: PRODUCT USED FOR UNKNOWN INDICATION
     Route: 065
  7. SODIUM VALPROATE [Suspect]
     Active Substance: VALPROATE SODIUM
     Indication: PRODUCT USED FOR UNKNOWN INDICATION
     Route: 065
  8. TRAZODONE [Suspect]
     Active Substance: TRAZODONE HYDROCHLORIDE
     Route: 065
  9. GINKGO BILOBA EXTRACT [Suspect]
     Active Substance: GINKGO
     Indication: PRODUCT USED FOR UNKNOWN INDICATION
     Route: 065
  10. ETHYL LOFLAZEPATE [Suspect]
     Active Substance: ETHYL LOFLAZEPATE
     Indication: ANXIETY
     Route: 065
  11. QUETIAPINE. [Suspect]
     Active Substance: QUETIAPINE
     Route: 065
  12. QUETIAPINE. [Suspect]
     Active Substance: QUETIAPINE
     Route: 065
  13. QUETIAPINE. [Suspect]
     Active Substance: QUETIAPINE
     Route: 065
  14. PAROXETINE. [Suspect]
     Active Substance: PAROXETINE
     Indication: ANXIETY
     Route: 065
  15. CHLORPROMAZINE. [Suspect]
     Active Substance: CHLORPROMAZINE
     Indication: PRODUCT USED FOR UNKNOWN INDICATION
     Route: 065
     Dates: start: 201501

REACTIONS (1)
  - Drug ineffective [Not Recovered/Not Resolved]
